FAERS Safety Report 7463633-4 (Version None)
Quarter: 2011Q2

REPORT INFORMATION
  Report Type: 
  Country: None (occurrence: None)
  Receive Date: 20110506
  Receipt Date: 20110427
  Transmission Date: 20111010
  Serious: Yes (Other)
  Sender: FDA-Public Use
  Company Number: US-SANOFI-AVENTIS-2011SA022689

PATIENT
  Age: 68 Year
  Sex: Male
  Weight: 90.71 kg

DRUGS (8)
  1. FLUOXETINE [Concomitant]
     Indication: BLOOD PRESSURE
     Dosage: 1 CAPSULE
  2. LANTUS [Suspect]
     Indication: TYPE 2 DIABETES MELLITUS
     Dosage: DOSE:30 UNIT(S)
     Route: 058
  3. LANTUS [Suspect]
     Dosage: DOSE:20 UNIT(S)
     Route: 058
  4. PROVENTIL [Concomitant]
     Dosage: 2 PUFFS
  5. FENOFIBRATE [Concomitant]
     Indication: BLOOD PRESSURE
     Dosage: 1 CAPSULE
  6. NOVOLOG [Concomitant]
     Dosage: 2 TO 4 UNITS
  7. CRESTOR [Concomitant]
     Dosage: 1 TABLET
     Dates: start: 20040101
  8. HYDROCODONE BITARTRATE [Concomitant]
     Indication: PAIN
     Dosage: 1 TO 2 TABLETS

REACTIONS (1)
  - DEAFNESS UNILATERAL [None]
